FAERS Safety Report 7234504-3 (Version None)
Quarter: 2011Q1

REPORT INFORMATION
  Report Type: 
  Country: None (occurrence: None)
  Receive Date: 20110119
  Receipt Date: 20110112
  Transmission Date: 20110831
  Serious: Yes (Hospitalization, Disabling, Other)
  Sender: FDA-Public Use
  Company Number: US-MERCK-0910USA04261

PATIENT
  Age: 45 Year
  Sex: Female
  Weight: 48 kg

DRUGS (3)
  1. FOSAMAX [Suspect]
     Indication: OSTEOPOROSIS
     Route: 048
     Dates: start: 20020901, end: 20050801
  2. BONIVA [Suspect]
     Indication: OSTEOPENIA
     Route: 048
     Dates: start: 20080101, end: 20090101
  3. ARIMIDEX [Concomitant]
     Indication: BREAST CANCER METASTATIC
     Route: 065
     Dates: start: 20030101

REACTIONS (39)
  - OESOPHAGEAL DISORDER [None]
  - OESOPHAGITIS [None]
  - OESOPHAGEAL DILATATION [None]
  - ADVERSE DRUG REACTION [None]
  - VERTEBRAL FORAMINAL STENOSIS [None]
  - NIGHT SWEATS [None]
  - COUGH [None]
  - GASTROOESOPHAGEAL REFLUX DISEASE [None]
  - HAEMATEMESIS [None]
  - SPONDYLOLYSIS [None]
  - WEIGHT DECREASED [None]
  - ORAL DISORDER [None]
  - EATING DISORDER [None]
  - BONE PAIN [None]
  - OESOPHAGEAL ACHALASIA [None]
  - OESOPHAGEAL STENOSIS [None]
  - OEDEMA PERIPHERAL [None]
  - TOOTH DISORDER [None]
  - RIB FRACTURE [None]
  - PAIN IN EXTREMITY [None]
  - DISLOCATION OF VERTEBRA [None]
  - CHEST WALL MASS [None]
  - THROMBOSIS [None]
  - BREAST CANCER [None]
  - MALAISE [None]
  - ABDOMINAL PAIN [None]
  - MALLORY-WEISS SYNDROME [None]
  - COCCYDYNIA [None]
  - ARTHRALGIA [None]
  - CHEST DISCOMFORT [None]
  - INTERVERTEBRAL DISC DEGENERATION [None]
  - FEBRILE NEUTROPENIA [None]
  - OSTEONECROSIS OF JAW [None]
  - DYSPHAGIA [None]
  - UPPER GASTROINTESTINAL HAEMORRHAGE [None]
  - DRUG INTOLERANCE [None]
  - SPONDYLOLISTHESIS [None]
  - NAUSEA [None]
  - ABSCESS ORAL [None]
